FAERS Safety Report 24920632 (Version 1)
Quarter: 2025Q1

REPORT INFORMATION
  Report Type: Report from Study
  Country: US (occurrence: US)
  Receive Date: 20250204
  Receipt Date: 20250204
  Transmission Date: 20250408
  Serious: No
  Sender: EXELIXIS
  Company Number: US-EXELIXIS-CABO-24074369

PATIENT
  Age: 81 Year
  Sex: Male
  Weight: 67 kg

DRUGS (22)
  1. CABOMETYX [Suspect]
     Active Substance: CABOZANTINIB S-MALATE
     Indication: Angiosarcoma metastatic
     Dosage: 40 MG, QD
     Route: 048
     Dates: start: 20240204
  2. NIVOLUMAB [Suspect]
     Active Substance: NIVOLUMAB
     Indication: Angiosarcoma metastatic
     Route: 042
     Dates: start: 20240204
  3. SENNA S [Concomitant]
     Active Substance: DOCUSATE SODIUM\SENNOSIDES
  4. MIRALAX [Concomitant]
     Active Substance: POLYETHYLENE GLYCOL 3350
  5. METOPROLOL SUCCINATE [Concomitant]
     Active Substance: METOPROLOL SUCCINATE
  6. CRESTOR [Concomitant]
     Active Substance: ROSUVASTATIN CALCIUM
  7. ASPIRIN [Concomitant]
     Active Substance: ASPIRIN
  8. TYLENOL EXTRA STRENGTH [Concomitant]
     Active Substance: ACETAMINOPHEN
  9. FENTANYL [Concomitant]
     Active Substance: FENTANYL
  10. FLUMAZENIL [Concomitant]
     Active Substance: FLUMAZENIL
  11. MIDAZOLAM [Concomitant]
     Active Substance: MIDAZOLAM
  12. NALOXONE [Concomitant]
     Active Substance: NALOXONE
  13. ONDANSETRON [Concomitant]
     Active Substance: ONDANSETRON
  14. SODIUM CHLORIDE [Concomitant]
     Active Substance: SODIUM CHLORIDE
  15. PROCHLORPERAZINE [Concomitant]
     Active Substance: PROCHLORPERAZINE
  16. TRIAMCINOLONE [Concomitant]
     Active Substance: TRIAMCINOLONE
  17. VITAMINS [Concomitant]
     Active Substance: VITAMINS
  18. ROSUVASTATIN [Concomitant]
     Active Substance: ROSUVASTATIN
  19. ACETAMINOPHEN [Concomitant]
     Active Substance: ACETAMINOPHEN
  20. DIPHENHYDRAMINE [Concomitant]
     Active Substance: DIPHENHYDRAMINE
  21. FAMOTIDINE [Concomitant]
     Active Substance: FAMOTIDINE
  22. HYDROMORPHONE [Concomitant]
     Active Substance: HYDROMORPHONE

REACTIONS (19)
  - Platelet count decreased [Unknown]
  - Taste disorder [Unknown]
  - Pain in extremity [Unknown]
  - Blood alkaline phosphatase increased [Unknown]
  - Aspartate aminotransferase increased [Unknown]
  - Hypertension [Recovering/Resolving]
  - Fatigue [Recovering/Resolving]
  - Decreased appetite [Unknown]
  - Weight decreased [Unknown]
  - Headache [Recovered/Resolved]
  - Asthenia [Unknown]
  - Muscle spasms [Recovered/Resolved]
  - Eructation [Recovering/Resolving]
  - Hand dermatitis [Recovering/Resolving]
  - Rash [Recovering/Resolving]
  - Dyspnoea [Unknown]
  - Hyperkeratosis [Unknown]
  - Sensitive skin [Unknown]
  - Off label use [Unknown]

NARRATIVE: CASE EVENT DATE: 20240201
